FAERS Safety Report 21389703 (Version 4)
Quarter: 2025Q1

REPORT INFORMATION
  Report Type: Report from Study
  Country: FR (occurrence: FR)
  Receive Date: 20220929
  Receipt Date: 20250103
  Transmission Date: 20250409
  Serious: Yes (Other)
  Sender: TERSERA THERAPEUTICS
  Company Number: FR-TERSERA THERAPEUTICS LLC-2022TRS004039

PATIENT

DRUGS (2)
  1. PRIALT [Suspect]
     Active Substance: ZICONOTIDE ACETATE
     Indication: Pain
     Route: 065
  2. PRIALT [Suspect]
     Active Substance: ZICONOTIDE ACETATE
     Route: 065

REACTIONS (6)
  - Hallucination [Recovered/Resolved]
  - Hallucination, auditory [Recovered/Resolved]
  - Malaise [Recovered/Resolved]
  - Vertigo [Recovered/Resolved]
  - Somnolence [Recovered/Resolved]
  - Hypotension [Recovered/Resolved]

NARRATIVE: CASE EVENT DATE: 20211120
